FAERS Safety Report 14539514 (Version 2)
Quarter: 2018Q1

REPORT INFORMATION
  Report Type: Spontaneous
  Country: US (occurrence: US)
  Receive Date: 20180216
  Receipt Date: 20180305
  Transmission Date: 20180509
  Serious: No
  Sender: FDA-Public Use
  Company Number: US-VIIV HEALTHCARE LIMITED-US2018025114

PATIENT
  Sex: Male

DRUGS (4)
  1. TIVICAY [Suspect]
     Active Substance: DOLUTEGRAVIR SODIUM
     Indication: HIV INFECTION
     Dosage: 1 DF, QD
     Dates: start: 2017
  2. PREZISTA [Concomitant]
     Active Substance: DARUNAVIR ETHANOLATE
  3. NORVIR [Concomitant]
     Active Substance: RITONAVIR
  4. ISENTRESS [Concomitant]
     Active Substance: RALTEGRAVIR POTASSIUM

REACTIONS (2)
  - Condition aggravated [Recovered/Resolved]
  - Depression [Recovered/Resolved]

NARRATIVE: CASE EVENT DATE: 2017
